FAERS Safety Report 13512150 (Version 1)
Quarter: 2017Q2

REPORT INFORMATION
  Report Type: Spontaneous
  Country: US (occurrence: US)
  Receive Date: 20170503
  Receipt Date: 20170503
  Transmission Date: 20170830
  Serious: Yes (Hospitalization)
  Sender: FDA-Public Use
  Company Number: None

PATIENT
  Age: 70 Year
  Sex: Female

DRUGS (1)
  1. NEXAVAR [Suspect]
     Active Substance: SORAFENIB
     Indication: APLASIA PURE RED CELL
     Route: 048
     Dates: start: 20170123, end: 20170428

REACTIONS (1)
  - Malaise [None]

NARRATIVE: CASE EVENT DATE: 20170428
